FAERS Safety Report 14159427 (Version 1)
Quarter: 2017Q4

REPORT INFORMATION
  Report Type: Other
  Country: GB (occurrence: IR)
  Receive Date: 20171103
  Receipt Date: 20171103
  Transmission Date: 20180321
  Serious: Yes (Death, Life-Threatening, Other)
  Sender: FDA-Public Use
  Company Number: IR-INTERNATIONAL MEDICATION SYSTEMS, LIMITED-2033217

PATIENT
  Age: 70 Year
  Sex: Male

DRUGS (10)
  1. FOLINIC ACID [Suspect]
     Active Substance: LEUCOVORIN
     Route: 042
  2. HYDROCHLOROTHIAZIDE. [Concomitant]
     Active Substance: HYDROCHLOROTHIAZIDE
  3. LORAZEPAM. [Concomitant]
     Active Substance: LORAZEPAM
  4. CITALOPRAM [Concomitant]
     Active Substance: CITALOPRAM HYDROBROMIDE
  5. SODIUM HYDROGEN CARBONATE INFUSION, 2 MEQ/KG [Suspect]
     Active Substance: SODIUM BICARBONATE
     Indication: TOXICITY TO VARIOUS AGENTS
     Route: 042
  6. ETHANOL 20% [Suspect]
     Active Substance: ALCOHOL
  7. ATORVASTATIN [Concomitant]
     Active Substance: ATORVASTATIN
  8. SODIUM HYDROGEN CARBONATE INFUSION, 25 MEQ/KG [Suspect]
     Active Substance: SODIUM BICARBONATE
     Route: 042
  9. ETHANOL 20% [Suspect]
     Active Substance: ALCOHOL
  10. METOPROLOL. [Concomitant]
     Active Substance: METOPROLOL

REACTIONS (2)
  - Drug ineffective [Fatal]
  - Death [Fatal]
